FAERS Safety Report 14603543 (Version 1)
Quarter: 2018Q1

REPORT INFORMATION
  Report Type: Spontaneous
  Country: US (occurrence: US)
  Receive Date: 20180306
  Receipt Date: 20180306
  Transmission Date: 20180509
  Serious: Yes (Other)
  Sender: FDA-Public Use
  Company Number: US-COVIS PHARMA B.V.-2018COV00159

PATIENT
  Age: 76 Year
  Sex: Female
  Weight: 77.98 kg

DRUGS (6)
  1. LOSARTAN. [Concomitant]
     Active Substance: LOSARTAN
  2. BETAPACE AF [Suspect]
     Active Substance: SOTALOL HYDROCHLORIDE
     Indication: ATRIAL FIBRILLATION
     Dosage: 80 MG, 1X/DAY
     Route: 048
     Dates: start: 201606, end: 201801
  3. LIPITOR [Concomitant]
     Active Substance: ATORVASTATIN CALCIUM
  4. BETAPACE AF [Suspect]
     Active Substance: SOTALOL HYDROCHLORIDE
     Dosage: 160 MG, 1X/DAY
     Route: 048
     Dates: start: 201801
  5. AMLODIPINE [Concomitant]
     Active Substance: AMLODIPINE BESYLATE
  6. ZETIA [Concomitant]
     Active Substance: EZETIMIBE

REACTIONS (4)
  - Atrial fibrillation [Recovered/Resolved]
  - Fatigue [Not Recovered/Not Resolved]
  - Somnolence [Not Recovered/Not Resolved]
  - Drug ineffective [Unknown]

NARRATIVE: CASE EVENT DATE: 201801
